FAERS Safety Report 15704271 (Version 1)
Quarter: 2018Q4

REPORT INFORMATION
  Report Type: Spontaneous
  Country: US (occurrence: US)
  Receive Date: 20181210
  Receipt Date: 20181210
  Transmission Date: 20190205
  Serious: No
  Sender: FDA-Public Use
  Company Number: None

PATIENT
  Age: 46 Year
  Sex: Female
  Weight: 78.3 kg

DRUGS (4)
  1. PANTOPRAZOLE [Concomitant]
     Active Substance: PANTOPRAZOLE
  2. BUTALBITAL [Concomitant]
     Active Substance: BUTALBITAL
  3. REXALL [Suspect]
     Active Substance: OXYMETAZOLINE HYDROCHLORIDE
     Indication: NASAL DRYNESS
     Dosage: ?          QUANTITY:3 SPRAY(S);?
     Route: 055
     Dates: start: 20181205, end: 20181205
  4. RANITIDINE. [Concomitant]
     Active Substance: RANITIDINE

REACTIONS (7)
  - Nasal discomfort [None]
  - Burning sensation [None]
  - Erythema [None]
  - Deafness [None]
  - Lacrimation increased [None]
  - Headache [None]
  - Tinnitus [None]

NARRATIVE: CASE EVENT DATE: 20181205
